FAERS Safety Report 10214091 (Version 1)
Quarter: 2014Q2

REPORT INFORMATION
  Report Type: Spontaneous
  Country: US (occurrence: US)
  Receive Date: 20140603
  Receipt Date: 20140603
  Transmission Date: 20141212
  Serious: Yes (Hospitalization)
  Sender: FDA-Public Use
  Company Number: US-INCYTE CORPORATION-2014IN001476

PATIENT
  Sex: Male

DRUGS (12)
  1. JAKAFI [Suspect]
     Indication: MYELOFIBROSIS
     Dosage: 5 MG, BID
     Route: 048
  2. PRILOSEC                           /00661201/ [Concomitant]
  3. ATORVASTATIN [Concomitant]
  4. SULFASALAZINE [Concomitant]
  5. ALLOPURINOL [Concomitant]
  6. DANAZOL [Concomitant]
  7. HYDROCODONE [Concomitant]
  8. ALTACE [Concomitant]
  9. AMLODIPINE [Concomitant]
  10. ASPIRIN [Concomitant]
     Dosage: 81 MG
  11. NIASPAN [Concomitant]
  12. PREDNISONE [Concomitant]

REACTIONS (1)
  - Infection [Unknown]
